FAERS Safety Report 9764814 (Version 1)
Quarter: 2013Q4

REPORT INFORMATION
  Report Type: Spontaneous
  Country: US (occurrence: None)
  Receive Date: 20131216
  Receipt Date: 20131216
  Transmission Date: 20140711
  Serious: Yes (Other)
  Sender: FDA-Public Use
  Company Number: None

PATIENT
  Age: 57 Year
  Sex: Male
  Weight: 102.06 kg

DRUGS (1)
  1. TRAZADONE [Suspect]
     Indication: SLEEP DISORDER
     Dosage: 1 PILL
     Route: 048
     Dates: start: 20131128, end: 20131129

REACTIONS (9)
  - Dizziness [None]
  - Confusional state [None]
  - Decreased activity [None]
  - Dysuria [None]
  - Activities of daily living impaired [None]
  - Renal failure [None]
  - Confusional state [None]
  - Gastrointestinal motility disorder [None]
  - Thirst [None]
